FAERS Safety Report 7406447-3 (Version None)
Quarter: 2011Q2

REPORT INFORMATION
  Report Type: 
  Country: None (occurrence: None)
  Receive Date: 20110411
  Receipt Date: 20110405
  Transmission Date: 20111010
  Serious: Yes (Death, Life-Threatening, Hospitalization, Other)
  Sender: FDA-Public Use
  Company Number: PHHY2010JP56277

PATIENT
  Sex: Male
  Weight: 62 kg

DRUGS (9)
  1. SUNITINIB MALATE [Concomitant]
     Indication: METASTATIC RENAL CELL CARCINOMA
     Dosage: 50 MG, UNK
     Route: 048
     Dates: start: 20090721, end: 20100409
  2. SORAFENIB TOSILATE [Concomitant]
     Indication: METASTATIC RENAL CELL CARCINOMA
     Dosage: 800 MG, UNK
     Route: 048
     Dates: start: 20090603, end: 20090701
  3. AFINITOR [Suspect]
     Dosage: 5 MG DAILY
     Route: 048
     Dates: start: 20100721, end: 20100910
  4. ZYLORIC ^FRESENIUS^ [Concomitant]
     Dosage: 100 MG, UNK
     Route: 048
     Dates: end: 20100922
  5. PREDONINE [Concomitant]
     Dosage: 30 MG DAILY
     Dates: start: 20100713
  6. AFINITOR [Suspect]
     Dosage: 5 MG DAILY
     Route: 048
     Dates: start: 20100517, end: 20100518
  7. AFINITOR [Suspect]
     Dosage: 5 MG DAILY
     Route: 048
     Dates: start: 20100526, end: 20100702
  8. THYRADIN [Concomitant]
     Dosage: 50 UG, UNK
     Route: 048
     Dates: end: 20100922
  9. AFINITOR [Suspect]
     Indication: METASTATIC RENAL CELL CARCINOMA
     Dosage: 10 MG DAILY
     Route: 048
     Dates: start: 20100507, end: 20100516

REACTIONS (11)
  - COUGH [None]
  - METASTASES TO LUNG [None]
  - LYMPHOCYTE COUNT DECREASED [None]
  - METASTASES TO LIVER [None]
  - CEREBRAL HAEMORRHAGE [None]
  - PLATELET COUNT DECREASED [None]
  - ANAEMIA [None]
  - PYREXIA [None]
  - BLOOD ALKALINE PHOSPHATASE INCREASED [None]
  - NEOPLASM MALIGNANT [None]
  - INTERSTITIAL LUNG DISEASE [None]
